FAERS Safety Report 6936651-X (Version None)
Quarter: 2010Q3

REPORT INFORMATION
  Report Type: 
  Country: None (occurrence: None)
  Receive Date: 20100818
  Receipt Date: 20100805
  Transmission Date: 20110219
  Serious: Yes (Hospitalization, Other)
  Sender: FDA-Public Use
  Company Number: 7004739

PATIENT
  Age: 56 Year
  Sex: Female
  Weight: 54 kg

DRUGS (11)
  1. REBIF [Suspect]
     Indication: MULTIPLE SCLEROSIS
     Dosage: 44 MCG, 3 IN 1 WK, SUBCUTANEOUS
     Route: 058
     Dates: start: 20060101
  2. RHINOCORT [Concomitant]
  3. AMITRIPTYLINE HYDROCHLORIDE [Concomitant]
  4. XANAX [Concomitant]
  5. NUVIGIL [Concomitant]
  6. SKELAXIN (METAZALONE) [Concomitant]
  7. PROVENTIL [Concomitant]
  8. ADVAIR DISKUS 100/50 [Concomitant]
  9. VITAMIN A [Concomitant]
  10. ASCORBIC ACID [Concomitant]
  11. VITAMIN D [Concomitant]

REACTIONS (22)
  - ANXIETY [None]
  - ASTHENIA [None]
  - ASTHMA [None]
  - ATROPHY [None]
  - BILE DUCT STENOSIS [None]
  - BLADDER DISORDER [None]
  - CONSTIPATION [None]
  - DIARRHOEA [None]
  - DYSPHAGIA [None]
  - FIBROMYALGIA [None]
  - GASTRIC DISORDER [None]
  - GASTRITIS [None]
  - GASTROINTESTINAL MOTILITY DISORDER [None]
  - HEADACHE [None]
  - HYPERHIDROSIS [None]
  - HYPOPHAGIA [None]
  - MULTIPLE ALLERGIES [None]
  - PANCREATIC CYST [None]
  - PANCREATITIS [None]
  - TREMOR [None]
  - VOMITING [None]
  - WEIGHT DECREASED [None]
